FAERS Safety Report 11638159 (Version 1)
Quarter: 2015Q4

REPORT INFORMATION
  Report Type: Report from Study
  Country: ES (occurrence: ES)
  Receive Date: 20151016
  Receipt Date: 20151016
  Transmission Date: 20160304
  Serious: Yes (Hospitalization)
  Sender: FDA-Public Use
  Company Number: ES-SEATTLE GENETICS-2015SGN01623

PATIENT

DRUGS (4)
  1. VINBLASTINE [Suspect]
     Active Substance: VINBLASTINE
     Indication: HODGKIN^S DISEASE
     Dosage: 14 MG, UNK
     Route: 042
     Dates: start: 20150630, end: 20150929
  2. DACARBAZINE. [Suspect]
     Active Substance: DACARBAZINE
     Indication: HODGKIN^S DISEASE
     Dosage: 864 MG, UNK
     Route: 042
     Dates: start: 20150630, end: 20150929
  3. BRENTUXIMAB VEDOTIN [Suspect]
     Active Substance: BRENTUXIMAB VEDOTIN
     Indication: HODGKIN^S DISEASE
     Dosage: 120 MG, UNK
     Route: 042
     Dates: start: 20150630, end: 20150929
  4. DOXORUBICIN [Suspect]
     Active Substance: DOXORUBICIN
     Indication: HODGKIN^S DISEASE
     Dosage: 58 MG, UNK
     Route: 042
     Dates: start: 20150630, end: 20150929

REACTIONS (4)
  - Subcutaneous abscess [Recovered/Resolved with Sequelae]
  - Staphylococcus test positive [None]
  - Neutropenia [None]
  - Physical disability [None]

NARRATIVE: CASE EVENT DATE: 20151007
